FAERS Safety Report 6024266-X (Version None)
Quarter: 2008Q4

REPORT INFORMATION
  Report Type: 
  Country: None (occurrence: None)
  Receive Date: 20081231
  Receipt Date: 20080915
  Transmission Date: 20090506
  Serious: No
  Sender: FDA-Public Use
  Company Number: US-BAYER-200832750NA

PATIENT
  Age: 76 Year
  Sex: Female
  Weight: 64 kg

DRUGS (1)
  1. ULTRAVIST 300 [Suspect]
     Indication: ANGIOGRAM
     Dosage: TOTAL DAILY DOSE: 95 ML  UNIT DOSE: 100 ML
     Route: 042

REACTIONS (2)
  - ERYTHEMA [None]
  - PRURITUS [None]
